FAERS Safety Report 11352154 (Version 1)
Quarter: 2015Q3

REPORT INFORMATION
  Report Type: Spontaneous
  Country: US (occurrence: US)
  Receive Date: 20150807
  Receipt Date: 20150807
  Transmission Date: 20151125
  Serious: No
  Sender: FDA-Public Use
  Company Number: US-JNJFOC-20150707069

PATIENT
  Age: 41 Year
  Sex: Female
  Weight: 79.38 kg

DRUGS (2)
  1. ZYRTEC-D [Suspect]
     Active Substance: CETIRIZINE HYDROCHLORIDE\PSEUDOEPHEDRINE HYDROCHLORIDE
     Indication: NASAL CONGESTION
     Dosage: ABOUT EVERY 12 HOURS, EVERYDAY ALL YEAR ROUND
     Route: 048
     Dates: end: 20150619
  2. ZYRTEC-D [Suspect]
     Active Substance: CETIRIZINE HYDROCHLORIDE\PSEUDOEPHEDRINE HYDROCHLORIDE
     Indication: PARANASAL SINUS DISCOMFORT
     Dosage: ABOUT EVERY 12 HOURS, EVERYDAY ALL YEAR ROUND
     Route: 048
     Dates: end: 20150619

REACTIONS (3)
  - Incorrect drug administration duration [Not Recovered/Not Resolved]
  - Vertigo [Not Recovered/Not Resolved]
  - Dizziness [Not Recovered/Not Resolved]

NARRATIVE: CASE EVENT DATE: 201501
